FAERS Safety Report 7057983-3 (Version None)
Quarter: 2010Q4

REPORT INFORMATION
  Report Type: 
  Country: None (occurrence: None)
  Receive Date: 20101022
  Receipt Date: 20101006
  Transmission Date: 20110411
  Serious: Yes (Hospitalization, Other)
  Sender: FDA-Public Use
  Company Number: PHHY2010FR67473

PATIENT
  Age: 86 Year
  Sex: Female

DRUGS (9)
  1. VALSARTAN  AND HYDROCHLOROTHIAZIDE [Suspect]
     Indication: HYPERTENSION
     Dosage: UNK
     Dates: end: 20061101
  2. CORDARONE [Suspect]
     Indication: ARRHYTHMIA
  3. FOSAMAX [Suspect]
  4. LASIX [Concomitant]
  5. ENOXAPARIN SODIUM [Concomitant]
  6. ESOMEPRAZOLE [Concomitant]
  7. SOTALEX [Concomitant]
  8. KALEORID [Concomitant]
  9. KARDEGIC [Concomitant]

REACTIONS (10)
  - COUGH [None]
  - DYSPNOEA [None]
  - GENERAL PHYSICAL HEALTH DETERIORATION [None]
  - HYPERCAPNIA [None]
  - HYPOXIA [None]
  - LUNG DISORDER [None]
  - PULMONARY FIBROSIS [None]
  - RALES [None]
  - RESPIRATORY FAILURE [None]
  - STAPHYLOCOCCAL INFECTION [None]
